FAERS Safety Report 5362095-0 (Version None)
Quarter: 2007Q2

REPORT INFORMATION
  Report Type: 
  Country: None (occurrence: None)
  Receive Date: 20070530
  Receipt Date: 20070309
  Transmission Date: 20071010
  Serious: No
  Sender: FDA-Public Use
  Company Number: 2007PV031513

PATIENT
  Age: 44 Year
  Sex: Female

DRUGS (4)
  1. BYETTA [Suspect]
     Indication: DIABETES MELLITUS NON-INSULIN-DEPENDENT
     Dosage: 500 MG; BID; PO
     Route: 048
     Dates: start: 20070306
  2. METFORMIN HCL [Concomitant]
  3. PRANDIN [Concomitant]
  4. GLIPIZIDE [Concomitant]

REACTIONS (6)
  - DIZZINESS [None]
  - ERUCTATION [None]
  - HYPERCHLORHYDRIA [None]
  - NAUSEA [None]
  - TREMOR [None]
  - VERTIGO [None]
